FAERS Safety Report 7890150-X (Version None)
Quarter: 2011Q4

REPORT INFORMATION
  Report Type: 
  Country: None (occurrence: None)
  Receive Date: 20111103
  Receipt Date: 20111102
  Transmission Date: 20120403
  Serious: Yes (Hospitalization)
  Sender: FDA-Public Use
  Company Number: US-GILEAD-2011-0045814

PATIENT
  Age: 62 Year
  Sex: Female

DRUGS (3)
  1. LETAIRIS [Suspect]
     Indication: PULMONARY SARCOIDOSIS
  2. LETAIRIS [Suspect]
     Indication: PULMONARY HYPERTENSION
     Dosage: 10 MG, UNK
     Route: 048
     Dates: start: 20110719
  3. LETAIRIS [Suspect]
     Indication: PULMONARY FIBROSIS

REACTIONS (4)
  - NAUSEA [None]
  - VOMITING [None]
  - RENAL FAILURE [None]
  - DEHYDRATION [None]
